FAERS Safety Report 13613285 (Version 1)
Quarter: 2017Q2

REPORT INFORMATION
  Report Type: Spontaneous
  Country: DE (occurrence: DE)
  Receive Date: 20170605
  Receipt Date: 20170605
  Transmission Date: 20170830
  Serious: Yes (Other)
  Sender: FDA-Public Use
  Company Number: DE-MYLANLABS-2017M1031627

PATIENT

DRUGS (9)
  1. INEGY 10/40 [Suspect]
     Active Substance: EZETIMIBE\SIMVASTATIN
     Indication: HYPERLIPIDAEMIA
     Dosage: UNK, QD
     Route: 065
     Dates: end: 201609
  2. INEGY 10/40 [Suspect]
     Active Substance: EZETIMIBE\SIMVASTATIN
     Dosage: UNK, QD
     Dates: start: 201611, end: 20170331
  3. OMEPRAZOLE MYLAN [Suspect]
     Active Substance: OMEPRAZOLE
     Dosage: 20 MG, UNK
     Route: 065
     Dates: start: 20170119, end: 20170331
  4. OMEPRAZOLE MYLAN [Suspect]
     Active Substance: OMEPRAZOLE
     Dosage: 20 MG, BID
     Route: 065
     Dates: start: 20170419
  5. RANITIDINE. [Suspect]
     Active Substance: RANITIDINE
     Indication: OESOPHAGEAL ULCER
     Dosage: UNK
     Route: 065
     Dates: start: 20160511, end: 201605
  6. METOPROLOL 50 [Concomitant]
     Indication: VASCULAR GRAFT
     Dosage: 0.5 DF, QD
     Route: 065
  7. ASS 100 PROTECT [Concomitant]
     Indication: VASCULAR GRAFT
     Dosage: UNK, QD
     Route: 065
  8. OMEPRAZOLE MYLAN [Suspect]
     Active Substance: OMEPRAZOLE
     Indication: OESOPHAGEAL ULCER
     Dosage: 40 MG, BID
     Route: 065
     Dates: start: 20160525, end: 201606
  9. OMEPRAZOLE MYLAN [Suspect]
     Active Substance: OMEPRAZOLE
     Indication: CHEST PAIN
     Dosage: 40 MG, BID
     Route: 065
     Dates: start: 20160411, end: 20160511

REACTIONS (13)
  - Weight increased [Not Recovered/Not Resolved]
  - Dyspepsia [Recovered/Resolved]
  - Gait disturbance [Unknown]
  - Impaired quality of life [Unknown]
  - Paraesthesia [Unknown]
  - Pain in extremity [Not Recovered/Not Resolved]
  - Arthralgia [Not Recovered/Not Resolved]
  - Musculoskeletal pain [Not Recovered/Not Resolved]
  - Dysphagia [Unknown]
  - Pain [Not Recovered/Not Resolved]
  - Gastric ulcer [Unknown]
  - Mobility decreased [Unknown]
  - Myalgia [Not Recovered/Not Resolved]

NARRATIVE: CASE EVENT DATE: 201604
